FAERS Safety Report 15723024 (Version 2)
Quarter: 2019Q1

REPORT INFORMATION
  Report Type: Report from Study
  Country: PE (occurrence: PE)
  Receive Date: 20181214
  Receipt Date: 20190114
  Transmission Date: 20190417
  Serious: Yes (Death, Hospitalization, Other)
  Sender: FDA-Public Use
  Company Number: PE-JNJFOC-20181132360

PATIENT
  Age: 69 Year
  Sex: Female

DRUGS (1)
  1. IMBRUVICA [Suspect]
     Active Substance: IBRUTINIB
     Indication: CHRONIC LYMPHOCYTIC LEUKAEMIA
     Route: 048
     Dates: start: 20180522, end: 2018

REACTIONS (5)
  - Pulmonary fibrosis [Not Recovered/Not Resolved]
  - Pulmonary oedema [Not Recovered/Not Resolved]
  - Blood glucose increased [Fatal]
  - Pneumonia [Fatal]
  - Cardiac failure [Fatal]

NARRATIVE: CASE EVENT DATE: 20181119
